FAERS Safety Report 8976517 (Version 1)
Quarter: 2012Q4

REPORT INFORMATION
  Report Type: 
  Country: US (occurrence: US)
  Receive Date: 20121220
  Receipt Date: 20121220
  Transmission Date: 20130627
  Serious: Yes (Other)
  Sender: FDA-Public Use
  Company Number: US-JNJFOC-20121202508

PATIENT
  Age: 35 Year
  Sex: Male

DRUGS (8)
  1. FENTANYL [Suspect]
     Indication: PAIN
     Route: 062
  2. HYDROCODONE [Suspect]
     Indication: PAIN
     Route: 065
  3. TRIAMTERENE [Suspect]
     Indication: PRODUCT USED FOR UNKNOWN INDICATION
     Route: 065
  4. RAMELTEON [Suspect]
     Indication: SLEEP DISORDER
     Route: 065
  5. TEMAZEPAM [Suspect]
     Indication: SLEEP DISORDER
     Route: 065
  6. FENTANYL CITRATE [Suspect]
     Indication: PAIN
     Route: 042
  7. VENLAFAXINE [Concomitant]
     Indication: PRODUCT USED FOR UNKNOWN INDICATION
     Route: 065
  8. FLUOXETINE [Concomitant]
     Indication: PRODUCT USED FOR UNKNOWN INDICATION
     Route: 065

REACTIONS (5)
  - Sleep apnoea syndrome [Recovered/Resolved]
  - Fatigue [Recovering/Resolving]
  - Somnolence [Not Recovered/Not Resolved]
  - Weight increased [Unknown]
  - Depression [Not Recovered/Not Resolved]
